FAERS Safety Report 15155158 (Version 1)
Quarter: 2018Q3

REPORT INFORMATION
  Report Type: Spontaneous
  Country: US (occurrence: US)
  Receive Date: 20180620
  Receipt Date: 20180620
  Transmission Date: 20181010
  Serious: Yes (Disabling, Other)
  Sender: FDA-Public Use
  Company Number: None

PATIENT
  Age: 55 Year
  Sex: Female
  Weight: 75.6 kg

DRUGS (1)
  1. FLUTICASONE PROPINATE NASAL SPRAY 50 MCG PER SPRAY 120 METERED SPRAYS [Suspect]
     Active Substance: FLUTICASONE PROPIONATE
     Indication: HYPERSENSITIVITY
     Dosage: ?          QUANTITY:1 SPRAY(S);OTHER ROUTE:1 SPRAY IN EACH NOSTRIL?

REACTIONS (3)
  - Cough [None]
  - Epistaxis [None]
  - Headache [None]

NARRATIVE: CASE EVENT DATE: 20171212
